FAERS Safety Report 6004705-0 (Version None)
Quarter: 2008Q4

REPORT INFORMATION
  Report Type: 
  Country: None (occurrence: None)
  Receive Date: 20081216
  Receipt Date: 20081211
  Transmission Date: 20090506
  Serious: Yes (Hospitalization, Other)
  Sender: FDA-Public Use
  Company Number: US-ROXANE LABORATORIES, INC.-2008-RO-00400RO

PATIENT
  Age: 60 Year
  Sex: Male

DRUGS (8)
  1. MYCOPHENOLATE MOFETIL [Suspect]
     Indication: IMMUNOSUPPRESSION
     Dosage: 1.5G
  2. ATGAM [Suspect]
     Indication: IMMUNOSUPPRESSION
  3. TACROLIMUS [Suspect]
     Indication: IMMUNOSUPPRESSION
  4. STEROID TAPER [Suspect]
     Indication: IMMUNOSUPPRESSION
  5. LINEZOLID [Suspect]
     Indication: ENTEROCOCCAL INFECTION
  6. VANCOMYCIN [Concomitant]
     Indication: EVIDENCE BASED TREATMENT
  7. CEFEPIME [Concomitant]
     Indication: EVIDENCE BASED TREATMENT
  8. CIPROFLOXACIN HCL [Concomitant]
     Indication: MORAXELLA INFECTION
     Route: 048

REACTIONS (3)
  - BACTERAEMIA [None]
  - ENTEROCOCCAL INFECTION [None]
  - ILEUS [None]
